FAERS Safety Report 8843133 (Version 1)
Quarter: 2012Q4

REPORT INFORMATION
  Report Type: 
  Country: US (occurrence: US)
  Receive Date: 20121016
  Receipt Date: 20121016
  Transmission Date: 20130627
  Serious: No
  Sender: FDA-Public Use
  Company Number: US-VERTEX PHARMACEUTICAL INC.-2012-022491

PATIENT
  Sex: Female

DRUGS (4)
  1. VX-950 [Suspect]
     Indication: HEPATITIS C
     Dosage: 750 mg, tid
     Dates: start: 20120725
  2. RIBAPAK [Suspect]
     Indication: HEPATITIS C
     Dosage: 400 mg, qd
     Dates: start: 20120725
  3. RIBAPAK [Suspect]
     Dosage: 600 mg, qd
     Dates: start: 20120725
  4. PEGASYS [Suspect]
     Indication: HEPATITIS C
     Dosage: 180 ?g, qw
     Dates: start: 20120725

REACTIONS (1)
  - Malaise [Unknown]
